FAERS Safety Report 7650117-3 (Version None)
Quarter: 2011Q3

REPORT INFORMATION
  Report Type: 
  Country: None (occurrence: None)
  Receive Date: 20110802
  Receipt Date: 20110721
  Transmission Date: 20111222
  Serious: Yes (Hospitalization)
  Sender: FDA-Public Use
  Company Number: US-JNJFOC-20110709535

PATIENT
  Age: 54 Year
  Sex: Female
  Weight: 59.88 kg

DRUGS (1)
  1. BENGAY ULTRA STRENGTH PAIN RELIEVING CREAM [Suspect]
     Indication: BACK PAIN
     Route: 061
     Dates: start: 20110101

REACTIONS (3)
  - DRUG INEFFECTIVE [None]
  - PNEUMONIA [None]
  - PRODUCT QUALITY ISSUE [None]
